FAERS Safety Report 10184051 (Version 1)
Quarter: 2014Q2

REPORT INFORMATION
  Report Type: Spontaneous
  Country: US (occurrence: US)
  Receive Date: 20140520
  Receipt Date: 20140520
  Transmission Date: 20141212
  Serious: Yes (Hospitalization)
  Sender: FDA-Public Use
  Company Number: US-ELI_LILLY_AND_COMPANY-US201405004716

PATIENT
  Sex: Male

DRUGS (9)
  1. EFFIENT [Concomitant]
     Indication: STENT PLACEMENT
  2. ALLOPURINOL [Concomitant]
     Dosage: 300 MG, QD
  3. ZETIA [Concomitant]
     Dosage: 10 MG, QD
  4. ATORVASTATIN [Concomitant]
     Dosage: 40 MG, QD
  5. ANDROGEL [Concomitant]
     Dosage: UNK, QD
  6. CIALIS [Suspect]
     Indication: ERECTILE DYSFUNCTION
     Dosage: 5 MG, QD
     Route: 048
  7. CIALIS [Suspect]
     Indication: BENIGN PROSTATIC HYPERPLASIA
     Dosage: 10 MG, QOD
  8. METOPROLOL [Concomitant]
     Dosage: 50 MG, QD
  9. LISINOPRIL [Concomitant]
     Dosage: 10 MG, QD

REACTIONS (3)
  - Coronary artery occlusion [Recovered/Resolved]
  - Chest pain [Recovered/Resolved]
  - Intentional product misuse [Unknown]
